FAERS Safety Report 5291957-8 (Version None)
Quarter: 2007Q2

REPORT INFORMATION
  Report Type: 
  Country: None (occurrence: None)
  Receive Date: 20070406
  Receipt Date: 20070406
  Transmission Date: 20071010
  Serious: Yes (Other)
  Sender: FDA-Public Use
  Company Number: None

PATIENT
  Age: 76 Year
  Sex: Female
  Weight: 103 kg

DRUGS (1)
  1. FLUNISOLIDE [Suspect]

REACTIONS (3)
  - NASAL DISCOMFORT [None]
  - NASAL DRYNESS [None]
  - NASAL MUCOSAL DISORDER [None]
